FAERS Safety Report 4314886-2 (Version None)
Quarter: 2004Q1

REPORT INFORMATION
  Report Type: 
  Country: None (occurrence: None)
  Receive Date: 20040310
  Receipt Date: 20040310
  Transmission Date: 20041129
  Serious: Yes (Disabling)
  Sender: FDA-Public Use
  Company Number: None

PATIENT
  Age: 76 Year
  Sex: Male
  Weight: 84.369 kg

DRUGS (1)
  1. CRESTOR [Suspect]
     Dosage: 10 MG DAY ORAL
     Route: 048

REACTIONS (5)
  - ASTHENIA [None]
  - BACK PAIN [None]
  - FATIGUE [None]
  - MYALGIA [None]
  - RENAL PAIN [None]
